FAERS Safety Report 8296847-4 (Version None)
Quarter: 2012Q2

REPORT INFORMATION
  Report Type: 
  Country: None (occurrence: None)
  Receive Date: 20120419
  Receipt Date: 20120405
  Transmission Date: 20120825
  Serious: Yes (Hospitalization)
  Sender: FDA-Public Use
  Company Number: PL-AMGEN-POLSP2012007002

PATIENT
  Age: 35 Year
  Sex: Female
  Weight: 49 kg

DRUGS (7)
  1. CIPRONEX                           /00697201/ [Concomitant]
     Dosage: UNK
     Route: 048
  2. KALIPOZ-PROLONGATUM [Concomitant]
     Dosage: UNK
     Route: 048
     Dates: start: 20070101
  3. INSULIN INSULATARD NPH NORDISK [Concomitant]
     Dosage: UNK
     Route: 058
  4. INSULIN ACTRAPID [Concomitant]
     Dosage: UNK
     Route: 058
  5. ENBREL [Suspect]
     Indication: RHEUMATOID ARTHRITIS
     Dosage: 50 MG, 1X/WEEK
     Route: 058
     Dates: start: 20110610, end: 20111230
  6. ENCORTON                           /00044701/ [Concomitant]
     Dosage: UNK
     Route: 048
  7. TRAMADOL HYDROCHLORIDE [Concomitant]
     Dosage: UNK
     Route: 048
     Dates: start: 20070101

REACTIONS (1)
  - LEUKOCYTOSIS [None]
